FAERS Safety Report 10056800 (Version 1)
Quarter: 2014Q2

REPORT INFORMATION
  Report Type: Spontaneous
  Country: JP (occurrence: JP)
  Receive Date: 20140403
  Receipt Date: 20140403
  Transmission Date: 20141212
  Serious: Yes (Hospitalization)
  Sender: FDA-Public Use
  Company Number: PHHY2014JP037799

PATIENT
  Sex: Female

DRUGS (3)
  1. UTERON [Suspect]
     Indication: THREATENED LABOUR
     Dosage: 100 GAMA/MIN
     Route: 042
  2. MAGNESIUM SULFATE [Suspect]
     Indication: THREATENED LABOUR
  3. BETAMETHASONE [Suspect]
     Indication: THREATENED LABOUR

REACTIONS (2)
  - Pulmonary oedema [Recovered/Resolved]
  - Maternal exposure during pregnancy [Unknown]
